FAERS Safety Report 9126755 (Version 1)
Quarter: 2013Q1

REPORT INFORMATION
  Report Type: Report from Study
  Country: US (occurrence: US)
  Receive Date: 20130122
  Receipt Date: 20130122
  Transmission Date: 20140127
  Serious: Yes (Death, Hospitalization, Other)
  Sender: FDA-Public Use
  Company Number: US-TEVA-381307USA

PATIENT
  Age: 66 Year
  Sex: Male
  Weight: 85.1 kg

DRUGS (2)
  1. DAUNORUBICIN [Suspect]
     Dates: start: 20121211, end: 20121227
  2. CYTARABINE [Suspect]
     Dates: start: 20121211

REACTIONS (4)
  - Septic shock [Fatal]
  - Enteritis [Fatal]
  - Neutropenia [Fatal]
  - Multi-organ disorder [Fatal]
